FAERS Safety Report 8058692-4 (Version None)
Quarter: 2012Q1

REPORT INFORMATION
  Report Type: 
  Country: None (occurrence: None)
  Receive Date: 20120120
  Receipt Date: 20120112
  Transmission Date: 20120608
  Serious: Yes (Congenital Anomaly, Other)
  Sender: FDA-Public Use
  Company Number: US-PFIZER INC-2011293436

PATIENT
  Sex: Female

DRUGS (6)
  1. MULTI-VITAMINS [Concomitant]
     Dosage: 1 TABLET, DAILY
     Route: 064
  2. ZOLOFT [Suspect]
     Dosage: 100 MG, 1X/DAY
     Route: 064
  3. COLACE [Concomitant]
     Dosage: 100 MG, 2X/DAY
     Route: 064
  4. ZOLOFT [Suspect]
     Dosage: 50 MG, 1X/DAY
     Route: 064
     Dates: start: 20060101
  5. SERAX [Concomitant]
     Indication: INSOMNIA
     Dosage: 10 TO 15 MG
     Route: 064
  6. ZOLOFT [Suspect]
     Indication: POSTPARTUM DEPRESSION
     Dosage: 25 MG, 1X/DAY FOR 7 DAYS
     Route: 064
     Dates: start: 20060504, end: 20060101

REACTIONS (6)
  - TRICUSPID VALVE DISEASE [None]
  - MATERNAL EXPOSURE TIMING UNSPECIFIED [None]
  - PULMONARY ARTERY ATRESIA [None]
  - HEART DISEASE CONGENITAL [None]
  - PATENT DUCTUS ARTERIOSUS [None]
  - ATRIAL SEPTAL DEFECT [None]
